FAERS Safety Report 10570120 (Version 1)
Quarter: 2014Q4

REPORT INFORMATION
  Report Type: Spontaneous
  Country: US (occurrence: None)
  Receive Date: 20141106
  Receipt Date: 20141106
  Transmission Date: 20150529
  Serious: No
  Sender: FDA-Public Use
  Company Number: None

PATIENT
  Age: 67 Year
  Sex: Female
  Weight: 60.33 kg

DRUGS (1)
  1. GADAVIST [Suspect]
     Active Substance: GADOBUTROL
     Indication: NUCLEAR MAGNETIC RESONANCE IMAGING
     Dates: start: 20140915, end: 20140915

REACTIONS (5)
  - Pruritus [None]
  - Musculoskeletal stiffness [None]
  - Rash erythematous [None]
  - Unevaluable event [None]
  - Arthralgia [None]

NARRATIVE: CASE EVENT DATE: 20140915
